FAERS Safety Report 8584594-0 (Version None)
Quarter: 2012Q3

REPORT INFORMATION
  Report Type: 
  Country: None (occurrence: None)
  Receive Date: 20120810
  Receipt Date: 20120807
  Transmission Date: 20120928
  Serious: Yes (Hospitalization, Other)
  Sender: FDA-Public Use
  Company Number: US-SANOFI-AVENTIS-2012SA041415

PATIENT
  Age: 61 Year
  Sex: Female
  Weight: 145.5 kg

DRUGS (17)
  1. DIABETA [Suspect]
     Indication: DIABETES MELLITUS
     Route: 065
  2. LOPRESSOR [Concomitant]
     Indication: BLOOD PRESSURE
  3. DICLOFENAC [Concomitant]
  4. VICODIN [Concomitant]
  5. GLUCOPHAGE [Suspect]
     Route: 065
  6. COUMADIN [Concomitant]
  7. HUMALOG [Concomitant]
     Dosage: 5MG AT MEALS
  8. LANTUS [Concomitant]
     Indication: DIABETES MELLITUS
     Dates: start: 20110815
  9. LANOXIN [Concomitant]
  10. HYDROCHLOROTHIAZIDE [Concomitant]
  11. FLEXERIL [Concomitant]
  12. VITAMIN D [Concomitant]
     Dosage: DOSE:50000 UNIT(S)
  13. SOLOSTAR [Concomitant]
     Indication: DIABETES MELLITUS
     Dates: start: 20110815
  14. BUMEX [Concomitant]
  15. ELAVIL [Concomitant]
  16. PRAVASTATIN [Concomitant]
  17. ALLOPURINOL [Concomitant]

REACTIONS (6)
  - CONDITION AGGRAVATED [None]
  - RESPIRATORY DISTRESS [None]
  - LARYNGEAL POLYP [None]
  - CHRONIC OBSTRUCTIVE PULMONARY DISEASE [None]
  - ASTHMA [None]
  - VOLVULUS [None]
